FAERS Safety Report 5937078-X (Version None)
Quarter: 2008Q4

REPORT INFORMATION
  Report Type: 
  Country: None (occurrence: None)
  Receive Date: 20081031
  Receipt Date: 20081022
  Transmission Date: 20090506
  Serious: Yes (Hospitalization)
  Sender: FDA-Public Use
  Company Number: IT-ROCHE-588091

PATIENT
  Sex: Female

DRUGS (1)
  1. BONIVA [Suspect]
     Indication: OSTEOPOROSIS
     Dosage: DRUG NAME REPORTED AS IBANDRONIC ACID/ UNKNOWN TRADE NAME.
     Route: 065
     Dates: start: 20061201

REACTIONS (3)
  - ABSCESS [None]
  - OSTEOMYELITIS [None]
  - OSTEONECROSIS [None]
